FAERS Safety Report 6439941-2 (Version None)
Quarter: 2009Q4

REPORT INFORMATION
  Report Type: 
  Country: None (occurrence: None)
  Receive Date: 20091113
  Receipt Date: 20091104
  Transmission Date: 20100525
  Serious: No
  Sender: FDA-Public Use
  Company Number: US-JNJFOC-20091101825

PATIENT
  Sex: Female
  Weight: 53.98 kg

DRUGS (8)
  1. DURAGESIC-100 [Suspect]
     Dosage: TOTAL 500.0 UG/HR
     Route: 062
     Dates: start: 20080101
  2. DURAGESIC-100 [Suspect]
     Indication: PANCREATITIS CHRONIC
     Dosage: TOTAL DOSE 600.0 UG/HR
     Route: 062
     Dates: start: 20080101
  3. DURAGESIC-100 [Suspect]
     Dosage: TOTAL 400.0 UG/HR
     Route: 062
  4. OXYCODONE HCL [Concomitant]
     Indication: PAIN
     Dosage: AS NEEDED
     Route: 048
  5. PHENERGAN HCL [Concomitant]
     Indication: NAUSEA
     Route: 048
  6. LORAZEPAM [Concomitant]
     Dosage: 2 DOSES AT NIGHT
     Route: 048
  7. LORAZEPAM [Concomitant]
     Indication: NAUSEA
     Route: 048
  8. UNKNOWN MEDICATION [Concomitant]
     Indication: SUPPLEMENTATION THERAPY
     Route: 048

REACTIONS (9)
  - APPLICATION SITE IRRITATION [None]
  - APPLICATION SITE RASH [None]
  - DRUG ADMINISTERED AT INAPPROPRIATE SITE [None]
  - INADEQUATE ANALGESIA [None]
  - PRODUCT QUALITY ISSUE [None]
  - SKIN DISCOLOURATION [None]
  - SKIN INDURATION [None]
  - WITHDRAWAL SYNDROME [None]
  - WRONG TECHNIQUE IN DRUG USAGE PROCESS [None]
